FAERS Safety Report 5553978-7 (Version None)
Quarter: 2007Q4

REPORT INFORMATION
  Report Type: 
  Country: None (occurrence: None)
  Receive Date: 20071130
  Receipt Date: 20070809
  Transmission Date: 20080405
  Serious: Yes (Other)
  Sender: FDA-Public Use
  Company Number: US200707003051

PATIENT
  Age: 49 Year
  Sex: Female

DRUGS (9)
  1. BYETTA [Suspect]
     Dosage: SUBCUTANEOUS
     Route: 058
     Dates: start: 20051201, end: 20051201
  2. BYETTA [Suspect]
     Dosage: SUBCUTANEOUS
     Route: 058
     Dates: start: 20060701, end: 20060701
  3. ALLOPURINOL [Concomitant]
  4. DIOVAN [Concomitant]
  5. METFORMIN HCL [Concomitant]
  6. PENTASA [Concomitant]
  7. PREVACID [Concomitant]
  8. TRICOR [Concomitant]
  9. SIMVASTATIN [Concomitant]

REACTIONS (1)
  - ANAPHYLACTIC REACTION [None]
